FAERS Safety Report 7303628-4 (Version None)
Quarter: 2011Q1

REPORT INFORMATION
  Report Type: 
  Country: None (occurrence: None)
  Receive Date: 20110221
  Receipt Date: 20110212
  Transmission Date: 20110831
  Serious: Yes (Other)
  Sender: FDA-Public Use
  Company Number: US-AMGEN-USASP2011002539

PATIENT
  Age: 54 Year
  Sex: Female
  Weight: 95.692 kg

DRUGS (2)
  1. ENBREL [Suspect]
     Indication: OFF LABEL USE
  2. ENBREL [Suspect]
     Indication: RHEUMATOID ARTHRITIS
     Dosage: 50 MG, QWK
     Route: 058
     Dates: start: 20100721

REACTIONS (4)
  - WEIGHT DECREASED [None]
  - LIPOMA [None]
  - SYSTEMIC LUPUS ERYTHEMATOSUS [None]
  - FATIGUE [None]
